FAERS Safety Report 18364015 (Version 1)
Quarter: 2020Q4

REPORT INFORMATION
  Report Type: Spontaneous
  Country: US (occurrence: US)
  Receive Date: 20201007
  Receipt Date: 20201007
  Transmission Date: 20210114
  Serious: Yes (Other)
  Sender: FDA-Public Use
  Company Number: None

PATIENT
  Age: 41 Year
  Sex: Male
  Weight: 86.18 kg

DRUGS (1)
  1. SUBLOCADE [Suspect]
     Active Substance: BUPRENORPHINE
     Indication: DRUG DEPENDENCE
     Dosage: ?          OTHER DOSE:100MG/0.5MIPFS;?
     Route: 058
     Dates: start: 20200604, end: 20200906

REACTIONS (4)
  - Wound [None]
  - Injection site pain [None]
  - Decubitus ulcer [None]
  - Injection site reaction [None]

NARRATIVE: CASE EVENT DATE: 20201005
